FAERS Safety Report 12541160 (Version 14)
Quarter: 2017Q3

REPORT INFORMATION
  Report Type: Report from Study
  Country: BE (occurrence: BE)
  Receive Date: 20160708
  Receipt Date: 20170724
  Transmission Date: 20171127
  Serious: Yes (Hospitalization)
  Sender: FDA-Public Use
  Company Number: BE-EISAI MEDICAL RESEARCH-EC-2016-018320

PATIENT
  Age: 60 Year
  Sex: Female
  Weight: 60 kg

DRUGS (12)
  1. CARBAMAZEPINE. [Suspect]
     Active Substance: CARBAMAZEPINE
     Indication: EPILEPSY
     Route: 048
     Dates: start: 201507, end: 201510
  2. FENYTOINE [Suspect]
     Active Substance: PHENYTOIN
     Route: 048
     Dates: start: 20160808, end: 20161012
  3. FYCOMPA [Suspect]
     Active Substance: PERAMPANEL
     Route: 048
     Dates: start: 20170129, end: 20170206
  4. FYCOMPA [Suspect]
     Active Substance: PERAMPANEL
     Route: 048
     Dates: start: 20170207, end: 20170522
  5. FENYTOINE [Suspect]
     Active Substance: PHENYTOIN
     Indication: EPILEPSY
     Route: 048
     Dates: start: 201401, end: 201404
  6. FENYTOINE [Suspect]
     Active Substance: PHENYTOIN
     Route: 048
     Dates: start: 20161013
  7. FENYTOINE [Suspect]
     Active Substance: PHENYTOIN
     Route: 048
     Dates: start: 201404, end: 201507
  8. FYCOMPA [Suspect]
     Active Substance: PERAMPANEL
     Indication: EPILEPSY
     Route: 048
     Dates: start: 20160603, end: 20170128
  9. CARBAMAZEPINE. [Suspect]
     Active Substance: CARBAMAZEPINE
     Route: 048
     Dates: start: 201510
  10. FENYTOINE [Suspect]
     Active Substance: PHENYTOIN
     Route: 048
     Dates: start: 201507, end: 20160804
  11. DEPAKINE CHRONO [Concomitant]
     Active Substance: VALPROATE SODIUM
  12. VALPROAAT [Concomitant]

REACTIONS (4)
  - Pseudomonas infection [Recovered/Resolved]
  - Toxicity to various agents [Recovered/Resolved]
  - Status epilepticus [Recovered/Resolved]
  - Hyponatraemia [Recovered/Resolved]

NARRATIVE: CASE EVENT DATE: 20160624
